FAERS Safety Report 8229208-4 (Version None)
Quarter: 2012Q1

REPORT INFORMATION
  Report Type: 
  Country: None (occurrence: None)
  Receive Date: 20120322
  Receipt Date: 20120313
  Transmission Date: 20120608
  Serious: Yes (Hospitalization, Other)
  Sender: FDA-Public Use
  Company Number: US-JNJFOC-20120307483

PATIENT

DRUGS (1)
  1. XARELTO [Suspect]
     Indication: JOINT ARTHROPLASTY
     Route: 065
     Dates: end: 20120301

REACTIONS (1)
  - DEEP VEIN THROMBOSIS [None]
